FAERS Safety Report 16051420 (Version 1)
Quarter: 2019Q1

REPORT INFORMATION
  Report Type: Spontaneous
  Country: GB (occurrence: GB)
  Receive Date: 20190308
  Receipt Date: 20190308
  Transmission Date: 20190418
  Serious: Yes (Other)
  Sender: FDA-Public Use
  Company Number: GB-AUROBINDO-AUR-APL-2019-011910

PATIENT

DRUGS (2)
  1. DOXYCYCLINE. [Suspect]
     Active Substance: DOXYCYCLINE
     Indication: UPPER RESPIRATORY TRACT INFECTION
     Dosage: 100 MILLIGRAM, ONCE A DAY
     Route: 048
     Dates: start: 20190202, end: 20190206
  2. LAMOTRIGINE. [Suspect]
     Active Substance: LAMOTRIGINE
     Indication: EPILEPSY
     Dosage: 100 MILLIGRAM, ONCE A DAY
     Route: 065

REACTIONS (2)
  - Drug interaction [Unknown]
  - Epilepsy [Recovered/Resolved]

NARRATIVE: CASE EVENT DATE: 20190206
